FAERS Safety Report 4332130-7 (Version None)
Quarter: 2004Q1

REPORT INFORMATION
  Report Type: 
  Country: None (occurrence: None)
  Receive Date: 20040329
  Receipt Date: 20040316
  Transmission Date: 20041129
  Serious: Yes (Other)
  Sender: FDA-Public Use
  Company Number: 2004203988US

PATIENT
  Age: 8 Year
  Sex: Female

DRUGS (1)
  1. ROGAINE [Suspect]
     Indication: ACCIDENTAL EXPOSURE
     Dosage: 1/4 BOTTLE, ONCE, TOPICAL
     Route: 061
     Dates: start: 19960101, end: 19960101

REACTIONS (5)
  - ACCIDENTAL EXPOSURE [None]
  - CHEST PAIN [None]
  - DIZZINESS [None]
  - PALLOR [None]
  - PALPITATIONS [None]
